FAERS Safety Report 6850767-8 (Version None)
Quarter: 2010Q3

REPORT INFORMATION
  Report Type: 
  Country: None (occurrence: None)
  Receive Date: 20100716
  Receipt Date: 20100709
  Transmission Date: 20110219
  Serious: Yes (Congenital Anomaly)
  Sender: FDA-Public Use
  Company Number: US-MERCK-1001USA00941B1

PATIENT
  Sex: Male
  Weight: 2 kg

DRUGS (8)
  1. ISENTRESS [Suspect]
     Indication: HIV INFECTION
     Route: 065
     Dates: start: 20090711
  2. TRUVADA [Suspect]
     Indication: HIV INFECTION
     Route: 065
     Dates: start: 20090711
  3. CYANOCOBALAMIN [Concomitant]
     Route: 065
  4. TYLENOL [Concomitant]
     Indication: PAIN
     Route: 065
  5. TYLENOL [Concomitant]
     Indication: PYREXIA
     Route: 065
  6. XOPENEX HFA [Concomitant]
     Route: 065
  7. MOTRIN [Concomitant]
     Indication: PAIN
     Route: 065
  8. REMERON [Concomitant]
     Route: 065

REACTIONS (3)
  - CARDIAC VALVE DISEASE [None]
  - DRUG EXPOSURE DURING PREGNANCY [None]
  - PREMATURE BABY [None]
